FAERS Safety Report 20742027 (Version 1)
Quarter: 2022Q2

REPORT INFORMATION
  Report Type: Spontaneous
  Country: NL (occurrence: NL)
  Receive Date: 20220423
  Receipt Date: 20220423
  Transmission Date: 20220720
  Serious: Yes (Other)
  Sender: FDA-Public Use
  Company Number: None

PATIENT
  Sex: Female

DRUGS (1)
  1. TEMAZEPAM [Suspect]
     Active Substance: TEMAZEPAM
     Indication: Sleep disorder
     Dosage: 10 MILLIGRAM DAILY; 1 X A DAY 1 PIECE BEFORE GOING TO SLEEP,TEMAZEPAM CAPSULE 10MG / BRAND NAME NOT
     Dates: start: 201802, end: 20180323

REACTIONS (2)
  - Hallucination, visual [Unknown]
  - Limb discomfort [Unknown]
